FAERS Safety Report 8519703-2 (Version None)
Quarter: 2012Q3

REPORT INFORMATION
  Report Type: 
  Country: None (occurrence: None)
  Receive Date: 20120719
  Receipt Date: 20120709
  Transmission Date: 20120928
  Serious: Yes (Hospitalization)
  Sender: FDA-Public Use
  Company Number: DE-BRISTOL-MYERS SQUIBB COMPANY-16769457

PATIENT
  Age: 56 Year
  Sex: Male
  Weight: 59 kg

DRUGS (4)
  1. CETUXIMAB [Suspect]
     Indication: HEAD AND NECK CANCER
     Dosage: RECENT DOSE ON 03JUL2012
     Dates: start: 20120703
  2. FLUOROURACIL [Suspect]
     Indication: HEAD AND NECK CANCER
     Dosage: RECENT DOSE ON 03JUL2012
     Dates: start: 20120703
  3. DOCETAXEL [Suspect]
     Indication: HEAD AND NECK CANCER
     Dosage: RECENT DOSE ON 03JUL2012
     Dates: start: 20120703
  4. CISPLATIN [Suspect]
     Indication: HEAD AND NECK CANCER
     Dosage: RECENT DOSE ON 03JUL2012
     Dates: start: 20120703

REACTIONS (1)
  - DYSPNOEA [None]
